FAERS Safety Report 18860795 (Version 1)
Quarter: 2021Q1

REPORT INFORMATION
  Report Type: Spontaneous
  Country: HK (occurrence: HK)
  Receive Date: 20210208
  Receipt Date: 20210208
  Transmission Date: 20210420
  Serious: Yes (Life-Threatening, Hospitalization, Other)
  Sender: FDA-Public Use
  Company Number: HK-SERVIER-S21000883

PATIENT

DRUGS (5)
  1. TN UNSPECIFIED [ESOMEPRAZOLE SODIUM] [Concomitant]
     Active Substance: ESOMEPRAZOLE SODIUM
     Indication: GASTROOESOPHAGEAL REFLUX DISEASE
     Dosage: 10 MG, QD
     Route: 048
     Dates: start: 20200616, end: 20200619
  2. ONCASPAR [Suspect]
     Active Substance: PEGASPARGASE
     Indication: B PRECURSOR TYPE ACUTE LEUKAEMIA
     Dosage: 1575 IU, ONE DOSE
     Route: 042
     Dates: start: 20200604, end: 20200604
  3. TN UNSPECIFIED [VINCRISTINE SULFATE] [Concomitant]
     Active Substance: VINCRISTINE SULFATE
     Indication: B PRECURSOR TYPE ACUTE LEUKAEMIA
     Dosage: 1.2 MG
     Route: 042
     Dates: start: 20200602, end: 20200616
  4. TN UNSPECIFIED [DEXAMETHASONE PHOSPHATE] [Suspect]
     Active Substance: DEXAMETHASONE PHOSPHATE
     Indication: B PRECURSOR TYPE ACUTE LEUKAEMIA
     Dosage: 3 MG, BID
     Route: 048
     Dates: start: 20200616, end: 20200619
  5. SEPTRIN [Concomitant]
     Active Substance: SULFAMETHOXAZOLE\TRIMETHOPRIM
     Indication: PNEUMONIA PNEUMOCOCCAL
     Dosage: 360 MG, BID, THREE TIMES A WEEK
     Route: 048
     Dates: start: 20200408

REACTIONS (2)
  - Pancreatitis necrotising [Recovered/Resolved]
  - Shock [Recovered/Resolved]

NARRATIVE: CASE EVENT DATE: 20200619
